FAERS Safety Report 15127192 (Version 1)
Quarter: 2018Q3

REPORT INFORMATION
  Report Type: Spontaneous
  Country: DE (occurrence: DE)
  Receive Date: 20180710
  Receipt Date: 20180710
  Transmission Date: 20181010
  Serious: Yes (Hospitalization, Other)
  Sender: FDA-Public Use
  Company Number: PHHY1998DE002151

PATIENT
  Age: 73 Year
  Sex: Female
  Weight: 70 kg

DRUGS (7)
  1. SULFAMETHOXAZOLE+TRIMETHOPRIM [Suspect]
     Active Substance: SULFAMETHOXAZOLE\TRIMETHOPRIM
     Indication: LARYNGITIS
     Dosage: 1 DF, QD
     Route: 048
     Dates: start: 19960318
  2. EUPHYLLINE [Concomitant]
     Active Substance: THEOPHYLLINE ANHYDROUS
     Indication: NASOPHARYNGITIS
     Route: 048
  3. DIGITOXIN [Concomitant]
     Active Substance: DIGITOXIN
     Indication: CARDIAC DISORDER
     Dosage: 1 DF, QD
     Route: 048
  4. VERAPAMIL [Concomitant]
     Active Substance: VERAPAMIL HYDROCHLORIDE
     Indication: ATRIAL FIBRILLATION
     Dosage: 80 MG, QD
     Route: 048
  5. SANASTHMAX [Concomitant]
     Indication: NASOPHARYNGITIS
     Dosage: 1 DF, UNK
     Route: 055
  6. SPIRO COMP. [Suspect]
     Active Substance: FUROSEMIDE\SPIRONOLACTONE
     Indication: OEDEMA
     Dosage: 1 DF, QD
     Route: 048
  7. ACETYLSALICYLIC ACID [Suspect]
     Active Substance: ASPIRIN
     Indication: THROMBOSIS PROPHYLAXIS
     Dosage: 100 MG, QD
     Route: 048

REACTIONS (5)
  - Mucosal erosion [Recovering/Resolving]
  - Pyrexia [Recovering/Resolving]
  - Gamma-glutamyltransferase increased [Unknown]
  - Dermatitis bullous [Recovering/Resolving]
  - Rash [Recovering/Resolving]

NARRATIVE: CASE EVENT DATE: 19960318
